FAERS Safety Report 20071858 (Version 1)
Quarter: 2021Q4

REPORT INFORMATION
  Report Type: Spontaneous
  Country: US (occurrence: US)
  Receive Date: 20211116
  Receipt Date: 20211116
  Transmission Date: 20220304
  Serious: No
  Sender: FDA-Public Use
  Company Number: US-APOTEX-2021AP044133

PATIENT
  Sex: Female

DRUGS (14)
  1. OFLOXACIN [Suspect]
     Active Substance: OFLOXACIN
     Indication: Postoperative care
     Dosage: 2 DROPS PER EYE TWICE DAILY
     Route: 047
     Dates: start: 2021
  2. OFLOXACIN [Suspect]
     Active Substance: OFLOXACIN
     Dosage: 1  GTT DROP, QID
     Route: 047
  3. BROMFENAC SODIUM [Concomitant]
     Active Substance: BROMFENAC SODIUM
     Indication: Postoperative care
     Dosage: 1 DROP, Q.H.S
     Route: 047
  4. PREDNISOLONE ACETATE [Concomitant]
     Active Substance: PREDNISOLONE ACETATE
     Indication: Postoperative care
     Dosage: 5 MILLIGRAM DROP, TID
     Route: 047
  5. PREDNISOLONE ACETATE [Concomitant]
     Active Substance: PREDNISOLONE ACETATE
     Dosage: 1 DROP, BID
     Route: 047
  6. ALPHAGAN P [Concomitant]
     Active Substance: BRIMONIDINE TARTRATE
     Indication: Postoperative care
     Dosage: UNK, TID
     Route: 047
  7. ALPHAGAN P [Concomitant]
     Active Substance: BRIMONIDINE TARTRATE
     Dosage: UNK, BID
     Route: 047
  8. SIMVASTATIN [Concomitant]
     Active Substance: SIMVASTATIN
     Indication: Blood cholesterol
     Dosage: 5 MILLIGRAM, QD
     Route: 065
  9. LEVOTHYROXINE [Concomitant]
     Active Substance: LEVOTHYROXINE
     Indication: Thyroid disorder
     Dosage: 25 MICROGRAM, QD
     Route: 065
  10. ASPIRIN [Concomitant]
     Active Substance: ASPIRIN
     Indication: Product used for unknown indication
     Dosage: 81 MILLIGRAM, QD
     Route: 065
  11. FISH OIL [Concomitant]
     Active Substance: FISH OIL
     Indication: Supplementation therapy
     Dosage: 1200 MILLIGRAM
     Route: 065
  12. VITAMIN D3 [Concomitant]
     Active Substance: CHOLECALCIFEROL
     Indication: Supplementation therapy
     Dosage: 1000 INTERNATIONAL UNIT
     Route: 065
  13. APPLE CIDER VINEGAR [Concomitant]
     Active Substance: APPLE CIDER VINEGAR
     Indication: Supplementation therapy
     Dosage: 480 MILLIGRAM
     Route: 065
  14. HERBALS\TURMERIC [Concomitant]
     Active Substance: HERBALS\TURMERIC
     Indication: Supplementation therapy
     Dosage: 1 DOSAGE FORM, QD
     Route: 065

REACTIONS (3)
  - Eye swelling [Recovering/Resolving]
  - Skin wrinkling [Recovering/Resolving]
  - Dizziness [Recovered/Resolved]
